FAERS Safety Report 5535207-3 (Version None)
Quarter: 2007Q4

REPORT INFORMATION
  Report Type: 
  Country: None (occurrence: None)
  Receive Date: 20071206
  Receipt Date: 20071203
  Transmission Date: 20080405
  Serious: Yes (Disabling)
  Sender: FDA-Public Use
  Company Number: PHRM2007FR02726

PATIENT
  Age: 70 Year
  Sex: Male

DRUGS (3)
  1. ZOMETA [Suspect]
     Indication: MULTIPLE MYELOMA
     Dosage: 4 MG, QMO
     Dates: start: 20030601, end: 20070213
  2. ALKERAN [Concomitant]
     Indication: MULTIPLE MYELOMA
     Dates: start: 20020101
  3. THALIDOMIDE [Concomitant]
     Indication: MULTIPLE MYELOMA
     Dates: start: 20020101

REACTIONS (6)
  - BONE DEBRIDEMENT [None]
  - DENTAL PROSTHESIS PLACEMENT [None]
  - FISTULA [None]
  - OSTEITIS [None]
  - OSTEONECROSIS [None]
  - WOUND TREATMENT [None]
